FAERS Safety Report 5927657-8 (Version None)
Quarter: 2008Q4

REPORT INFORMATION
  Report Type: 
  Country: None (occurrence: None)
  Receive Date: 20081023
  Receipt Date: 20081017
  Transmission Date: 20090506
  Serious: Yes (Hospitalization, Other)
  Sender: FDA-Public Use
  Company Number: HQWYE591926AUG04

PATIENT
  Sex: Female

DRUGS (5)
  1. PREMARIN [Suspect]
  2. NORETHINDRONE ACETATE [Suspect]
  3. ESTRADIOL [Suspect]
  4. PROVERA [Suspect]
  5. ZOMEPIRAC [Concomitant]

REACTIONS (16)
  - BREAST CANCER METASTATIC [None]
  - COLONIC POLYP [None]
  - DEEP VEIN THROMBOSIS [None]
  - DIASTOLIC DYSFUNCTION [None]
  - HYPOAESTHESIA [None]
  - METASTASES TO BONE [None]
  - METASTASES TO SPLEEN [None]
  - METASTATIC NEOPLASM [None]
  - OESTROGEN RECEPTOR ASSAY POSITIVE [None]
  - OSTEOARTHRITIS [None]
  - PARAESTHESIA [None]
  - POST PROCEDURAL HAEMATOMA [None]
  - PROGESTERONE RECEPTOR ASSAY POSITIVE [None]
  - PULMONARY EMBOLISM [None]
  - SEROMA [None]
  - VENTRICULAR DYSFUNCTION [None]
